FAERS Safety Report 8538628-X (Version None)
Quarter: 2012Q3

REPORT INFORMATION
  Report Type: 
  Country: None (occurrence: None)
  Receive Date: 20120718
  Receipt Date: 20120718
  Transmission Date: 20120928
  Serious: Yes (Other)
  Sender: FDA-Public Use
  Company Number: None

PATIENT
  Age: 51 Year
  Sex: Female
  Weight: 66.6788 kg

DRUGS (2)
  1. AVALIDE [Suspect]
     Indication: HYPERTENSION
     Dosage: DAILY ORAL
     Route: 048
     Dates: start: 20060101, end: 20120101
  2. HYDROCHLOROTHIAZIDE [Suspect]

REACTIONS (3)
  - EYE HAEMORRHAGE [None]
  - INCREASED TENDENCY TO BRUISE [None]
  - BACK PAIN [None]
